FAERS Safety Report 8336778-4 (Version None)
Quarter: 2012Q2

REPORT INFORMATION
  Report Type: 
  Country: None (occurrence: None)
  Receive Date: 20120501
  Receipt Date: 20120410
  Transmission Date: 20120825
  Serious: No
  Sender: FDA-Public Use
  Company Number: CF 1777499

PATIENT
  Age: 35 Year
  Sex: Female

DRUGS (1)
  1. POLYETHYLENE GLYCOL [Suspect]
     Indication: DRY EYE
     Dosage: 1 DROP IN EYES AS NEEDED
     Dates: start: 20120116, end: 20120123

REACTIONS (1)
  - APPLICATION SITE INFECTION [None]
